FAERS Safety Report 4461733-4 (Version None)
Quarter: 2004Q3

REPORT INFORMATION
  Report Type: 
  Country: None (occurrence: None)
  Receive Date: 20040923
  Receipt Date: 20040831
  Transmission Date: 20050211
  Serious: Yes (Hospitalization, Other)
  Sender: FDA-Public Use
  Company Number: 2004234039US

PATIENT
  Sex: Male

DRUGS (1)
  1. CELEBREX [Suspect]
     Indication: ARTHRITIS
     Dosage: 200 MG,

REACTIONS (4)
  - HAEMATEMESIS [None]
  - HAEMORRHAGE [None]
  - OEDEMA PERIPHERAL [None]
  - SHOCK [None]
